FAERS Safety Report 9458423 (Version 1)
Quarter: 2013Q3

REPORT INFORMATION
  Report Type: Spontaneous
  Country: DE (occurrence: DE)
  Receive Date: 20130814
  Receipt Date: 20130814
  Transmission Date: 20140515
  Serious: Yes (Other)
  Sender: FDA-Public Use
  Company Number: GXKR2013DE002683

PATIENT
  Age: 1 Day
  Sex: Female
  Weight: 2.15 kg

DRUGS (2)
  1. CITALOPRAM [Suspect]
     Dosage: MATERNAL DOSE (0.-38.4 GESTATIONAL WEEK): 60MG/DAY
     Route: 064
  2. FOLSAEURE [Concomitant]
     Dosage: UNKNOWN MATERNAL DOSE (8.-12. GESTATIONAL WEEK)
     Route: 064

REACTIONS (2)
  - Small for dates baby [Recovered/Resolved]
  - Foetal exposure during pregnancy [Unknown]
